FAERS Safety Report 23699052 (Version 3)
Quarter: 2024Q3

REPORT INFORMATION
  Report Type: Spontaneous
  Country: US (occurrence: US)
  Receive Date: 20240402
  Receipt Date: 20240919
  Transmission Date: 20241017
  Serious: Yes (Other)
  Sender: TEVA
  Company Number: US-TEVA-VS-3174222

PATIENT
  Age: 52 Year
  Sex: Female

DRUGS (7)
  1. CEPHALEXIN [Suspect]
     Active Substance: CEPHALEXIN
     Indication: Impetigo
     Dosage: TWO COURSES OF ORAL CEFALEXIN
     Route: 048
  2. PIMOZIDE [Suspect]
     Active Substance: PIMOZIDE
     Indication: Delusion
     Dosage: WITH A PLAN TO UP-TITRATE BY 0.5 MG EVERY 2-3 WEEKS TO REACH 3 MG DAILY,
     Route: 048
     Dates: start: 2012
  3. PIMOZIDE [Suspect]
     Active Substance: PIMOZIDE
     Indication: Delusion
     Route: 048
  4. PIMOZIDE [Suspect]
     Active Substance: PIMOZIDE
     Indication: Delusion
     Route: 048
  5. PIMOZIDE [Suspect]
     Active Substance: PIMOZIDE
     Indication: Delusion
     Dosage: LOWERED DOSE
     Route: 048
  6. MINOCYCLINE [Suspect]
     Active Substance: MINOCYCLINE HYDROCHLORIDE
     Indication: Impetigo
     Route: 065
  7. RISPERIDONE [Suspect]
     Active Substance: RISPERIDONE
     Indication: Delusion of parasitosis
     Route: 065

REACTIONS (6)
  - Impetigo [Not Recovered/Not Resolved]
  - Tardive dyskinesia [Unknown]
  - Rebound effect [Unknown]
  - Drug ineffective [Unknown]
  - Drug ineffective [Unknown]
  - Akathisia [Recovered/Resolved]
